FAERS Safety Report 7753911-3 (Version None)
Quarter: 2011Q3

REPORT INFORMATION
  Report Type: 
  Country: None (occurrence: None)
  Receive Date: 20110915
  Receipt Date: 20110913
  Transmission Date: 20111222
  Serious: Yes (Other)
  Sender: FDA-Public Use
  Company Number: RU-SANOFI-AVENTIS-2011SA026322

PATIENT
  Age: 73 Year
  Sex: Female

DRUGS (8)
  1. BISOPROLOL FUMARATE [Suspect]
     Route: 048
     Dates: start: 20101101
  2. ASPIRIN [Suspect]
     Route: 048
     Dates: start: 20101101
  3. PLAVIX [Suspect]
     Indication: CORONARY ARTERIAL STENT INSERTION
     Route: 048
     Dates: start: 20101101
  4. SIMVASTATIN [Suspect]
     Route: 048
     Dates: start: 20101101
  5. ZOFENOPRIL [Suspect]
     Route: 048
     Dates: start: 20101101
  6. VALSARTAN [Suspect]
     Route: 048
     Dates: start: 20101101
  7. PLAVIX [Suspect]
     Indication: THROMBOSIS PROPHYLAXIS
     Route: 048
     Dates: start: 20101101
  8. PLAVIX [Suspect]
     Indication: MYOCARDIAL INFARCTION
     Route: 048
     Dates: start: 20101101

REACTIONS (4)
  - VISUAL IMPAIRMENT [None]
  - CONTUSION [None]
  - TONGUE DISCOLOURATION [None]
  - RETINAL DETACHMENT [None]
